FAERS Safety Report 23627623 (Version 1)
Quarter: 2024Q1

REPORT INFORMATION
  Report Type: Spontaneous
  Country: US (occurrence: US)
  Receive Date: 20240313
  Receipt Date: 20240313
  Transmission Date: 20240409
  Serious: Yes (Hospitalization)
  Sender: FDA-Public Use
  Company Number: US-AVADEL CNS PHARMACEUTICALS, LLC-2024AVA00288

PATIENT
  Age: 29 Year
  Sex: Female
  Weight: 97.506 kg

DRUGS (6)
  1. LUMRYZ [Suspect]
     Active Substance: SODIUM OXYBATE
     Indication: Narcolepsy
     Dosage: 4.5 G, TWICE FOR A TOTAL OF 2 DOSES IN ONE NIGHT (PRESCRIBED DOSE WAS 4.5 G ONCE NIGHTLY)
     Route: 048
     Dates: start: 20240216, end: 20240216
  2. LUMRYZ [Suspect]
     Active Substance: SODIUM OXYBATE
     Indication: Somnolence
  3. ALCOHOL [Suspect]
     Active Substance: ALCOHOL
     Dosage: UNK
     Route: 048
     Dates: start: 20240216
  4. FLUOXETINE [Concomitant]
     Active Substance: FLUOXETINE HYDROCHLORIDE
     Dosage: 40 MG, ONCE A DAY
  5. METHYLPHENIDATE [Concomitant]
     Active Substance: METHYLPHENIDATE
     Dosage: 10 MG, AS NEEDED (PATIENT TAKES MOST DAYS) (SHORT-ACTING)
  6. METHYLPHENIDATE [Concomitant]
     Active Substance: METHYLPHENIDATE
     Dosage: 20 MG ON AWAKENING AND 20 MG A FEW HOURS LATER

REACTIONS (5)
  - Alcohol poisoning [Unknown]
  - Suicidal ideation [Unknown]
  - Suicide attempt [Unknown]
  - Intentional overdose [Unknown]
  - Contraindicated product administered [Recovered/Resolved]

NARRATIVE: CASE EVENT DATE: 20240216
